FAERS Safety Report 7026871-0 (Version None)
Quarter: 2010Q4

REPORT INFORMATION
  Report Type: 
  Country: None (occurrence: None)
  Receive Date: 20101004
  Receipt Date: 20100929
  Transmission Date: 20110411
  Serious: Yes (Hospitalization)
  Sender: FDA-Public Use
  Company Number: A0835982A

PATIENT
  Age: 53 Year
  Sex: Male

DRUGS (8)
  1. AVANDIA [Suspect]
     Indication: TYPE 2 DIABETES MELLITUS
     Dosage: 4MG VARIABLE DOSE
     Route: 065
     Dates: start: 20051205, end: 20070706
  2. AVANDAMET [Suspect]
     Indication: TYPE 2 DIABETES MELLITUS
     Route: 065
     Dates: start: 20070427, end: 20070527
  3. NEURONTIN [Concomitant]
  4. GLUCOPHAGE [Concomitant]
  5. NORVASC [Concomitant]
  6. GLIPIZIDE [Concomitant]
  7. TOPROL-XL [Concomitant]
  8. ASPIRIN [Concomitant]

REACTIONS (14)
  - ALCOHOL USE [None]
  - AMNESIA [None]
  - BLOOD PRESSURE INCREASED [None]
  - CARDIAC FAILURE CONGESTIVE [None]
  - CEREBROVASCULAR ACCIDENT [None]
  - FALL [None]
  - HAEMORRHAGE INTRACRANIAL [None]
  - INTRAVENTRICULAR HAEMORRHAGE [None]
  - PNEUMONIA [None]
  - PULMONARY OEDEMA [None]
  - RESPIRATORY FAILURE [None]
  - SUBARACHNOID HAEMORRHAGE [None]
  - SUBDURAL HAEMATOMA [None]
  - UNRESPONSIVE TO STIMULI [None]
